FAERS Safety Report 22532065 (Version 2)
Quarter: 2024Q3

REPORT INFORMATION
  Report Type: Spontaneous
  Country: CN (occurrence: CN)
  Receive Date: 20230607
  Receipt Date: 20240823
  Transmission Date: 20241016
  Serious: Yes (Other)
  Sender: BLUEPRINT MEDICINES
  Company Number: CN-Blueprint Medicines Corporation-LT-CN-2023-000907

PATIENT

DRUGS (6)
  1. AYVAKIT [Suspect]
     Active Substance: AVAPRITINIB
     Indication: Abdominal neoplasm
     Route: 065
     Dates: start: 20221103
  2. AYVAKIT [Suspect]
     Active Substance: AVAPRITINIB
     Indication: Metastases to liver
     Route: 065
     Dates: start: 202201, end: 202309
  3. AYVAKIT [Suspect]
     Active Substance: AVAPRITINIB
     Indication: Gastrointestinal stromal tumour
     Route: 065
     Dates: start: 202201, end: 202309
  4. SUNITINIB [Suspect]
     Active Substance: SUNITINIB
     Indication: Abdominal neoplasm
     Route: 065
     Dates: start: 20221103
  5. SUNITINIB [Suspect]
     Active Substance: SUNITINIB
     Indication: Metastases to liver
     Route: 065
     Dates: start: 202201, end: 202309
  6. SUNITINIB [Suspect]
     Active Substance: SUNITINIB
     Indication: Gastrointestinal stromal tumour
     Route: 065
     Dates: start: 202201, end: 202309

REACTIONS (2)
  - Lymphopenia [Unknown]
  - Disease progression [Unknown]
